FAERS Safety Report 24444604 (Version 2)
Quarter: 2024Q4

REPORT INFORMATION
  Report Type: Report from Study
  Country: US (occurrence: US)
  Receive Date: 20241016
  Receipt Date: 20241017
  Transmission Date: 20250115
  Serious: No
  Sender: ROCHE
  Company Number: US-ROCHE-2845532

PATIENT
  Age: 69 Year
  Sex: Female

DRUGS (2)
  1. RITUXAN [Suspect]
     Active Substance: RITUXIMAB
     Indication: Dermatomyositis
     Dosage: INFUSE 1000MG INTRAVENOUSLY TWICE, 2 WEEKS APART AS DIRECTED
     Route: 042
  2. RITUXAN [Suspect]
     Active Substance: RITUXIMAB
     Indication: Polymyositis
     Dosage: 1000 MG INTRAVENOUSLY ON WEEK(S) 0 AND WEEK(S) 2, REPEAT PRESCRIBED DOSE EVERY 4-6 MONTH(S)
     Route: 042

REACTIONS (2)
  - Off label use [Unknown]
  - No adverse event [Unknown]
